FAERS Safety Report 16771025 (Version 1)
Quarter: 2019Q3

REPORT INFORMATION
  Report Type: Spontaneous
  Country: US (occurrence: US)
  Receive Date: 20190904
  Receipt Date: 20190904
  Transmission Date: 20191005
  Serious: Yes (Other)
  Sender: FDA-Public Use
  Company Number: US-ELI_LILLY_AND_COMPANY-US201908014309

PATIENT
  Sex: Male

DRUGS (7)
  1. LEVITRA [Suspect]
     Active Substance: VARDENAFIL HYDROCHLORIDE
     Dosage: 2.5 MG, WEEKLY (1/W)
     Route: 065
     Dates: start: 20100407, end: 20110907
  2. CIALIS [Suspect]
     Active Substance: TADALAFIL
     Indication: ERECTILE DYSFUNCTION
     Dosage: 10 MG, WEEKLY (1/W)
     Route: 065
     Dates: start: 20050404, end: 20150318
  3. LEVITRA [Suspect]
     Active Substance: VARDENAFIL HYDROCHLORIDE
     Dosage: 20 MG, WEEKLY (1/W)
     Route: 065
     Dates: start: 20110929, end: 20110929
  4. CIALIS [Suspect]
     Active Substance: TADALAFIL
     Dosage: 2.5 MG, WEEKLY (1/W)
     Route: 065
     Dates: start: 20050404, end: 20150318
  5. LEVITRA [Suspect]
     Active Substance: VARDENAFIL HYDROCHLORIDE
     Indication: ERECTILE DYSFUNCTION
     Dosage: 20 MG, WEEKLY (1/W)
     Route: 065
     Dates: start: 20040901, end: 20041221
  6. VIAGRA [Suspect]
     Active Substance: SILDENAFIL CITRATE
     Indication: ERECTILE DYSFUNCTION
     Dosage: 25 MG, WEEKLY (1/W)
     Route: 065
     Dates: start: 20111111, end: 20111111
  7. LEVITRA [Suspect]
     Active Substance: VARDENAFIL HYDROCHLORIDE
     Dosage: 20 MG, WEEKLY (1/W)
     Route: 065
     Dates: start: 20100407, end: 20110907

REACTIONS (1)
  - Malignant melanoma [Unknown]

NARRATIVE: CASE EVENT DATE: 20160509
